APPROVED DRUG PRODUCT: CEFAZOLIN SODIUM
Active Ingredient: CEFAZOLIN SODIUM
Strength: EQ 500MG BASE/VIAL
Dosage Form/Route: INJECTABLE;INJECTION
Application: A062831 | Product #001 | TE Code: AP
Applicant: SANDOZ INC
Approved: Dec 9, 1988 | RLD: No | RS: No | Type: RX